FAERS Safety Report 10151896 (Version 1)
Quarter: 2014Q2

REPORT INFORMATION
  Report Type: Report from Study
  Country: US (occurrence: None)
  Receive Date: 20140501
  Receipt Date: 20140501
  Transmission Date: 20141212
  Serious: Yes (Hospitalization)
  Sender: FDA-Public Use
  Company Number: SYM-2014-20226

PATIENT
  Age: 50 Year
  Sex: Female
  Weight: 105.01 kg

DRUGS (23)
  1. ATIVAN [Suspect]
     Indication: DEPRESSION
     Route: 048
     Dates: start: 20140206
  2. NALDEMEDINE [Suspect]
     Indication: CONSTIPATION
     Route: 048
     Dates: start: 20131219, end: 20140327
  3. SEROQUEL [Suspect]
     Indication: PRODUCT USED FOR UNKNOWN INDICATION
     Route: 048
     Dates: start: 20140206
  4. TRAZODONE [Suspect]
     Indication: DEPRESSION
     Dosage: EVERY NIGHT
     Route: 048
     Dates: start: 20140206
  5. CLONAZEPAM [Suspect]
     Indication: DEPRESSION
     Dosage: EVERY NIGHT
     Route: 048
     Dates: start: 20140206
  6. FLEXERIL [Suspect]
     Indication: BACK PAIN
     Route: 048
     Dates: start: 20140206
  7. TOPIRAMATE [Suspect]
     Indication: PRODUCT USED FOR UNKNOWN INDICATION
     Route: 048
     Dates: start: 20140206
  8. LAMOTRIGINE [Suspect]
     Indication: PRODUCT USED FOR UNKNOWN INDICATION
     Route: 048
     Dates: start: 20140206
  9. OXYCODONE/ACETAMINOPHEN (OXYCET) (PARACETAMOL, OXYCODONE HYDROCHLORIDE) [Concomitant]
  10. NORCO(VICODIN) (PARACETAMOL), HYDROCODONE BITARTRATE) [Concomitant]
  11. MELOXICAM (MELOXICAM) (MELOXICAM) [Concomitant]
  12. TIZANIDINE (TANZANIDINE) (TANZINIDINE) [Concomitant]
  13. NEURONTIN (GABAPENTIN) (GABAPENTIN) [Concomitant]
  14. ZOLPIDEM (ZOLPIDEM) (ZOLPIDEM) [Concomitant]
  15. LISINOPRIL (LISINOPRIL DIHYDRATE) (LISINOPRIL DIHYDRATE) [Concomitant]
  16. LEVOTHYROXINE (LEVOTHYROXINE) (LEVOTHYROXINE) [Concomitant]
  17. SENOKOT-S (SENOKOT-S) (DOCUSATE SODIUM, SENNA ALEXANDRINA) [Concomitant]
  18. HORMONES (HORMONES) [Concomitant]
  19. CYMBALTA [Concomitant]
  20. TESTOSTERONE (TESTOSTERONE) (TESTOSTERONE) [Concomitant]
  21. ESTRADIOL (ESTRADIOL) (ESTRADIOL) [Concomitant]
  22. PROGESTERONE (PROGESTERONE) (PROGESTERONE) [Concomitant]
  23. CIPRODEX (CIPROFLOXACIN HYDROCHLORIDE) (CIPROFLOXACIN HYDROCHLORIDE) [Concomitant]

REACTIONS (6)
  - Psychotic disorder [None]
  - Delusion [None]
  - Hallucination, visual [None]
  - Overdose [None]
  - Major depression [None]
  - Disease recurrence [None]
